FAERS Safety Report 9402036 (Version 5)
Quarter: 2013Q4

REPORT INFORMATION
  Report Type: Report from Study
  Country: DE (occurrence: DE)
  Receive Date: 20130716
  Receipt Date: 20131001
  Transmission Date: 20140711
  Serious: Yes (Other)
  Sender: FDA-Public Use
  Company Number: PHHY2013DE075200

PATIENT
  Sex: Female
  Weight: 52.6 kg

DRUGS (3)
  1. AFINITOR [Suspect]
     Indication: BREAST CANCER METASTATIC
     Dosage: 10 MG, QD
     Route: 048
     Dates: start: 20130328, end: 20130626
  2. EXEMESTANE [Concomitant]
     Indication: BREAST CANCER METASTATIC
     Dosage: 25 MG, QD
     Route: 048
     Dates: start: 20130328, end: 20130626
  3. BISPHOSPHONATES [Concomitant]

REACTIONS (2)
  - Heart rate irregular [Recovered/Resolved]
  - Pleural effusion [Recovering/Resolving]
